FAERS Safety Report 9362040 (Version 1)
Quarter: 2013Q2

REPORT INFORMATION
  Report Type: Spontaneous
  Country: US (occurrence: US)
  Receive Date: 20130621
  Receipt Date: 20130621
  Transmission Date: 20140414
  Serious: Yes (Hospitalization)
  Sender: FDA-Public Use
  Company Number: US-B.I. PHARMACEUTICALS,INC./RIDGEFIELD-2013-BI-17459BP

PATIENT
  Age: 57 Year
  Sex: Female

DRUGS (5)
  1. TRADJENTA [Suspect]
     Indication: TYPE 2 DIABETES MELLITUS
     Dosage: 5 MG
     Route: 048
     Dates: start: 201111
  2. ANTIHYPERTENSIVES [Concomitant]
     Indication: HYPERTENSION
  3. ARTHRITIS MEDICATION [Concomitant]
     Indication: ARTHRITIS
  4. PRILOSEC [Concomitant]
     Indication: ABDOMINAL DISCOMFORT
     Route: 048
  5. NITROGLYCERIN [Concomitant]
     Indication: ANGINA PECTORIS
     Route: 048

REACTIONS (1)
  - Myocardial infarction [Recovered/Resolved]
